FAERS Safety Report 6509590-6 (Version None)
Quarter: 2009Q4

REPORT INFORMATION
  Report Type: 
  Country: None (occurrence: None)
  Receive Date: 20091222
  Receipt Date: 20091214
  Transmission Date: 20100525
  Serious: Yes (Other)
  Sender: FDA-Public Use
  Company Number: CN-ROCHE-542337

PATIENT
  Age: 74 Year
  Sex: Female
  Weight: 50 kg

DRUGS (2)
  1. XELODA [Suspect]
     Indication: BREAST CANCER
     Dosage: REPORTED AS THE DRUG WAS DISCONTINUED IN THE FIRST HALF OF 2008
     Route: 048
     Dates: start: 20070915, end: 20080301
  2. XELODA [Suspect]
     Dosage: THREE THERAPY CYCLES IN TOTAL.
     Route: 048
     Dates: start: 20090901, end: 20091201

REACTIONS (6)
  - BREAST CANCER RECURRENT [None]
  - DECREASED APPETITE [None]
  - FATIGUE [None]
  - NAUSEA [None]
  - PAIN IN EXTREMITY [None]
  - POLLAKIURIA [None]
